FAERS Safety Report 7823856-9 (Version None)
Quarter: 2011Q4

REPORT INFORMATION
  Report Type: 
  Country: None (occurrence: None)
  Receive Date: 20111014
  Receipt Date: 20110915
  Transmission Date: 20120403
  Serious: Yes (Other)
  Sender: FDA-Public Use
  Company Number: 2011218296

PATIENT
  Age: 55 Year
  Sex: Female

DRUGS (4)
  1. CYTARABINE [Suspect]
     Indication: LEUKAEMIA
     Dosage: 1000 MG/M2, 1X/DAY, INTRAVENOUS, 200 MG/M2, 1X/DAY, INTRAVENOUS
     Route: 042
     Dates: start: 20081013, end: 20081019
  2. CYTARABINE [Suspect]
     Indication: LEUKAEMIA
     Dosage: 1000 MG/M2, 1X/DAY, INTRAVENOUS, 200 MG/M2, 1X/DAY, INTRAVENOUS
     Route: 042
     Dates: start: 20081029, end: 20081031
  3. CERUBIDINE [Suspect]
     Indication: ACUTE LEUKAEMIA
     Dosage: 35 MG/M2, 1X/DAY, INTRAVENOUS, 60 MG/M2, 1X/DAY, INTRAVENOUS
     Route: 042
     Dates: start: 20081029, end: 20081030
  4. CERUBIDINE [Suspect]
     Indication: ACUTE LEUKAEMIA
     Dosage: 35 MG/M2, 1X/DAY, INTRAVENOUS, 60 MG/M2, 1X/DAY, INTRAVENOUS
     Route: 042
     Dates: start: 20081013, end: 20081015

REACTIONS (1)
  - CYTOLYTIC HEPATITIS [None]
